FAERS Safety Report 4326836-3 (Version None)
Quarter: 2004Q1

REPORT INFORMATION
  Report Type: 
  Country: None (occurrence: None)
  Receive Date: 20040319
  Receipt Date: 20031212
  Transmission Date: 20041129
  Serious: No
  Sender: FDA-Public Use
  Company Number: US-JNJFOC-20031203455

PATIENT
  Age: 49 Year
  Sex: Female
  Weight: 63.5036 kg

DRUGS (2)
  1. ORTHO EVRA [Suspect]
     Indication: MIGRAINE
     Dosage: 1 DOSE(S), 1 IN 1 WEEK, TRANSDERMAL
     Route: 062
     Dates: start: 20031001
  2. FROVA (PROMETHAZINE) [Concomitant]

REACTIONS (1)
  - MENORRHAGIA [None]
